FAERS Safety Report 7265300-9 (Version None)
Quarter: 2011Q1

REPORT INFORMATION
  Report Type: 
  Country: None (occurrence: None)
  Receive Date: 20110131
  Receipt Date: 20101015
  Transmission Date: 20110831
  Serious: No
  Sender: FDA-Public Use
  Company Number: US-BAYER-201022630BCC

PATIENT
  Sex: Male
  Weight: 84.091 kg

DRUGS (3)
  1. ALEVE [Suspect]
     Indication: ARTHRITIS
     Dosage: BOTTLE COUNT 100CT
     Route: 048
     Dates: start: 20101012, end: 20101012
  2. ALEVE [Suspect]
     Dosage: BOTTLE COUNT 100CT
     Route: 048
     Dates: start: 20101013
  3. UNCODEABLE ^UNCLASSIFIABLE^ [Concomitant]

REACTIONS (1)
  - PROSTATOMEGALY [None]
